FAERS Safety Report 10878260 (Version 1)
Quarter: 2015Q1

REPORT INFORMATION
  Report Type: Spontaneous
  Country: US (occurrence: None)
  Receive Date: 20150224
  Receipt Date: 20150224
  Transmission Date: 20150721
  Serious: Yes (Hospitalization)
  Sender: FDA-Public Use
  Company Number: None

PATIENT
  Age: 49 Year
  Sex: Female
  Weight: 66.23 kg

DRUGS (3)
  1. LAMOTRIGINE. [Suspect]
     Active Substance: LAMOTRIGINE
     Indication: SEIZURE
     Dosage: 3
     Route: 048
     Dates: start: 20150201, end: 20150217
  2. KEPPRA [Concomitant]
     Active Substance: LEVETIRACETAM
  3. ALLERGY MED [Concomitant]

REACTIONS (9)
  - Erythema [None]
  - Pruritus [None]
  - Alanine aminotransferase increased [None]
  - Rhinorrhoea [None]
  - Aspartate aminotransferase increased [None]
  - Influenza like illness [None]
  - Pain [None]
  - Drug hypersensitivity [None]
  - Pyrexia [None]

NARRATIVE: CASE EVENT DATE: 20150219
